APPROVED DRUG PRODUCT: PHENTERMINE HYDROCHLORIDE
Active Ingredient: PHENTERMINE HYDROCHLORIDE
Strength: 15MG
Dosage Form/Route: CAPSULE;ORAL
Application: A040497 | Product #001
Applicant: ABLE LABORATORIES INC
Approved: Mar 13, 2003 | RLD: No | RS: No | Type: DISCN